FAERS Safety Report 13041245 (Version 1)
Quarter: 2016Q4

REPORT INFORMATION
  Report Type: Spontaneous
  Country: US (occurrence: US)
  Receive Date: 20161219
  Receipt Date: 20161219
  Transmission Date: 20170207
  Serious: No
  Sender: FDA-Public Use
  Company Number: US-AMNEAL PHARMACEUTICALS-2016AMN00068

PATIENT
  Sex: Male

DRUGS (1)
  1. OXYCODONE AND ACETAMINOPHEN [Suspect]
     Active Substance: ACETAMINOPHEN\OXYCODONE HYDROCHLORIDE
     Indication: ARTHRITIS
     Dosage: 10 MG, 4X/DAY
     Route: 048

REACTIONS (4)
  - Dizziness [Unknown]
  - Headache [Unknown]
  - Abdominal discomfort [Unknown]
  - Vomiting [Unknown]

NARRATIVE: CASE EVENT DATE: 20151219
